FAERS Safety Report 9305531 (Version 1)
Quarter: 2013Q2

REPORT INFORMATION
  Report Type: Spontaneous
  Country: NO (occurrence: None)
  Receive Date: 20130520
  Receipt Date: 20130520
  Transmission Date: 20140414
  Serious: Yes (Death)
  Sender: FDA-Public Use
  Company Number: FK201301549

PATIENT
  Age: 66 Year
  Sex: Female

DRUGS (2)
  1. GEMCITABINE (MANUFACTURER UNKNOWN)(GEMCITABINE)(GEMCITABINE) [Suspect]
     Indication: PANCREATIC CARCINOMA
     Route: 042
     Dates: start: 20100916, end: 20110407
  2. VENTOLINE (SALBUTAMOL) [Concomitant]

REACTIONS (1)
  - Capillary leak syndrome [None]
